FAERS Safety Report 4602670-1 (Version None)
Quarter: 2005Q1

REPORT INFORMATION
  Report Type: 
  Country: None (occurrence: None)
  Receive Date: 20050307
  Receipt Date: 20050222
  Transmission Date: 20050727
  Serious: Yes (Hospitalization)
  Sender: FDA-Public Use
  Company Number: 2005017952

PATIENT
  Age: 31 Year
  Sex: Female

DRUGS (3)
  1. ZELDOX (CAPSULES) (ZIPRASIDONE) [Suspect]
     Indication: SCHIZOPHRENIA
     Dosage: 200 MG (2 IN 1 D), ORAL
     Route: 048
     Dates: start: 20041109
  2. CLOZAPINE [Suspect]
     Indication: SCHIZOPHRENIA
     Dates: end: 20050214
  3. BUSPIRONE HCL [Concomitant]

REACTIONS (6)
  - ANXIETY [None]
  - BRADYCARDIA [None]
  - DISEASE RECURRENCE [None]
  - DIZZINESS [None]
  - PSYCHOTIC DISORDER [None]
  - SUICIDAL IDEATION [None]
